FAERS Safety Report 5582610-1 (Version None)
Quarter: 2008Q1

REPORT INFORMATION
  Report Type: 
  Country: None (occurrence: None)
  Receive Date: 20080107
  Receipt Date: 20071207
  Transmission Date: 20080703
  Serious: Yes (Hospitalization)
  Sender: FDA-Public Use
  Company Number: NO-NOVOPROD-270087

PATIENT
  Sex: Male

DRUGS (5)
  1. NOVORAPID [Suspect]
     Indication: INSULIN-REQUIRING TYPE 2 DIABETES MELLITUS
     Dates: start: 20030101, end: 20070101
  2. HUMULIN                            /00646002/ [Suspect]
     Indication: INSULIN-REQUIRING TYPE 2 DIABETES MELLITUS
     Dosage: 16 IU, QD
     Route: 058
     Dates: start: 20070801, end: 20071001
  3. HUMALOG [Suspect]
     Indication: INSULIN-REQUIRING TYPE 2 DIABETES MELLITUS
     Dosage: 8 IU, QD
     Route: 058
     Dates: start: 20070801, end: 20071001
  4. INSULATARD [Concomitant]
     Indication: INSULIN-REQUIRING TYPE 2 DIABETES MELLITUS
     Dates: start: 20030101, end: 20070801
  5. NOVOLOG MIX 70/30 [Concomitant]
     Indication: INSULIN-REQUIRING TYPE 2 DIABETES MELLITUS
     Dosage: UNK, UNK
     Dates: start: 20030101, end: 20070801

REACTIONS (6)
  - CONJUNCTIVITIS ALLERGIC [None]
  - DIZZINESS [None]
  - ERYTHEMA [None]
  - FEELING HOT [None]
  - HYPOAESTHESIA ORAL [None]
  - INJECTION SITE RASH [None]
